FAERS Safety Report 15905172 (Version 1)
Quarter: 2019Q1

REPORT INFORMATION
  Report Type: Spontaneous
  Country: AU (occurrence: AU)
  Receive Date: 20190204
  Receipt Date: 20190204
  Transmission Date: 20190417
  Serious: Yes (Life-Threatening, Other)
  Sender: FDA-Public Use
  Company Number: AU-ASTRAZENECA-2019SE18379

PATIENT
  Age: 59 Year
  Sex: Female

DRUGS (1)
  1. TICAGRELOR. [Suspect]
     Active Substance: TICAGRELOR
     Indication: THROMBOSIS PROPHYLAXIS
     Dosage: 180.0MG ONCE/SINGLE ADMINISTRATION
     Route: 048

REACTIONS (3)
  - Dyspnoea [Unknown]
  - Sinus arrest [Recovered/Resolved]
  - Unresponsive to stimuli [Recovered/Resolved]
